FAERS Safety Report 9288973 (Version 1)
Quarter: 2013Q2

REPORT INFORMATION
  Report Type: Spontaneous
  Country: CH (occurrence: CH)
  Receive Date: 20130514
  Receipt Date: 20130514
  Transmission Date: 20140414
  Serious: Yes (Hospitalization)
  Sender: FDA-Public Use
  Company Number: CH-GLAXOSMITHKLINE-B0891399A

PATIENT
  Age: 85 Year
  Sex: Female
  Weight: 51.6 kg

DRUGS (16)
  1. CLAMOXYL [Suspect]
     Indication: PRODUCT USED FOR UNKNOWN INDICATION
     Dosage: 1G FOUR TIMES PER DAY
     Route: 048
     Dates: start: 20130116, end: 20130123
  2. TAVANIC [Suspect]
     Indication: PRODUCT USED FOR UNKNOWN INDICATION
     Dosage: 375MG PER DAY
     Route: 042
     Dates: start: 20130201, end: 20130204
  3. CIPROXIN [Suspect]
     Indication: PRODUCT USED FOR UNKNOWN INDICATION
     Route: 065
     Dates: start: 20130113, end: 20130116
  4. DALACIN C [Suspect]
     Indication: PRODUCT USED FOR UNKNOWN INDICATION
     Route: 065
     Dates: start: 20130113, end: 20130116
  5. AMLODIPIN [Suspect]
     Indication: PRODUCT USED FOR UNKNOWN INDICATION
     Route: 048
     Dates: start: 20130110, end: 20130123
  6. LIQUEMIN [Suspect]
     Indication: PRODUCT USED FOR UNKNOWN INDICATION
     Route: 058
     Dates: start: 20130110, end: 20130211
  7. NOVALGIN [Suspect]
     Indication: PRODUCT USED FOR UNKNOWN INDICATION
     Route: 048
     Dates: start: 20130129, end: 20130209
  8. ASPIRIN CARDIO [Concomitant]
     Dosage: 100MG PER DAY
     Route: 048
  9. DANCOR [Concomitant]
     Dosage: 20MG TWICE PER DAY
     Route: 048
  10. CONCOR [Concomitant]
     Dosage: 2.5MG PER DAY
     Route: 048
  11. ENALAPRIL MALEATE [Concomitant]
     Dosage: 2.5MG PER DAY
     Route: 048
  12. NITRODERM [Concomitant]
     Dosage: 50MG PER DAY
     Route: 062
  13. SORTIS [Concomitant]
     Dosage: 20MG PER DAY
     Route: 048
  14. MADOPAR [Concomitant]
     Dosage: 125MG TWICE PER DAY
     Route: 048
  15. XANAX [Concomitant]
     Dosage: .5MG PER DAY
     Route: 048
  16. CITALOPRAM [Concomitant]
     Dosage: 20MG PER DAY
     Route: 048

REACTIONS (3)
  - Cholestatic liver injury [Recovering/Resolving]
  - Hepatic enzyme increased [Recovering/Resolving]
  - Pruritus [Recovered/Resolved]
